FAERS Safety Report 13690318 (Version 1)
Quarter: 2017Q2

REPORT INFORMATION
  Report Type: Spontaneous
  Country: US (occurrence: US)
  Receive Date: 20170626
  Receipt Date: 20170626
  Transmission Date: 20170830
  Serious: Yes (Other)
  Sender: FDA-Public Use
  Company Number: US-PFIZER INC-2017023881

PATIENT
  Age: 64 Year
  Sex: Female

DRUGS (1)
  1. IRINOTECAN HCL [Suspect]
     Active Substance: IRINOTECAN HYDROCHLORIDE
     Indication: COLON CANCER METASTATIC
     Dosage: 125 MG/M2, WEEKLY

REACTIONS (2)
  - Haematochezia [Recovered/Resolved]
  - Enterocolitis haemorrhagic [Recovered/Resolved]
